FAERS Safety Report 14713584 (Version 1)
Quarter: 2018Q2

REPORT INFORMATION
  Report Type: Spontaneous
  Country: DE (occurrence: DE)
  Receive Date: 20180404
  Receipt Date: 20180404
  Transmission Date: 20180711
  Serious: Yes (Other)
  Sender: FDA-Public Use
  Company Number: DE-AUROBINDO-AUR-APL-2018-018333

PATIENT
  Age: 54 Year
  Sex: Male
  Weight: 92 kg

DRUGS (1)
  1. GABAPENTIN. [Suspect]
     Active Substance: GABAPENTIN
     Indication: NEURALGIA
     Dosage: 5 X 100 ()
     Route: 048
     Dates: start: 20180301

REACTIONS (15)
  - Gastritis [Unknown]
  - Hyperhidrosis [Unknown]
  - Asthenia [Unknown]
  - Nausea [Unknown]
  - Dyspnoea [Unknown]
  - Abdominal pain upper [Unknown]
  - Peripheral coldness [Unknown]
  - Diarrhoea [Unknown]
  - Fatigue [Unknown]
  - Asthma [Unknown]
  - Pancreatitis [Unknown]
  - Decreased appetite [Unknown]
  - Cholecystitis [Unknown]
  - Nephritis [Unknown]
  - Blood pressure increased [Unknown]

NARRATIVE: CASE EVENT DATE: 201803
